FAERS Safety Report 18895001 (Version 9)
Quarter: 2021Q4

REPORT INFORMATION
  Report Type: Spontaneous
  Country: JP (occurrence: JP)
  Receive Date: 20210216
  Receipt Date: 20211221
  Transmission Date: 20220304
  Serious: Yes (Death, Hospitalization, Other)
  Sender: FDA-Public Use
  Company Number: JP-MSD-M2021-03220

PATIENT
  Sex: Male
  Weight: 47 kg

DRUGS (11)
  1. KEYTRUDA [Suspect]
     Active Substance: PEMBROLIZUMAB
     Indication: Lung adenocarcinoma stage IV
     Dosage: 200 MILLIGRAM, Q3W
     Route: 041
     Dates: start: 20190827, end: 20201017
  2. KEYTRUDA [Suspect]
     Active Substance: PEMBROLIZUMAB
     Dosage: 400 MILLIGRAM, EVERY 6 WEEKS
     Route: 041
     Dates: start: 20201018, end: 20210127
  3. CARBOPLATIN [Suspect]
     Active Substance: CARBOPLATIN
     Indication: Lung adenocarcinoma stage IV
     Dosage: 450 MILLIGRAM, Q3W
     Route: 041
     Dates: start: 20190827, end: 20190917
  4. CARBOPLATIN [Suspect]
     Active Substance: CARBOPLATIN
     Dosage: 330 MILLIGRAM, Q3W
     Route: 041
     Dates: start: 20190918, end: 20191008
  5. CARBOPLATIN [Suspect]
     Active Substance: CARBOPLATIN
     Dosage: 250 MILLIGRAM, Q3W
     Route: 041
     Dates: start: 20191009
  6. CARBOPLATIN [Suspect]
     Active Substance: CARBOPLATIN
     Dosage: AUC2.5, Q3W
     Route: 042
     Dates: start: 20210128, end: 20210128
  7. PEMETREXED DISODIUM [Suspect]
     Active Substance: PEMETREXED DISODIUM
     Indication: Lung adenocarcinoma stage IV
     Dosage: 750 MILLIGRAM, Q3W
     Route: 041
     Dates: start: 20190827, end: 20190917
  8. PEMETREXED DISODIUM [Suspect]
     Active Substance: PEMETREXED DISODIUM
     Dosage: 550 MILLIGRAM, Q3W
     Route: 041
     Dates: start: 20190918, end: 20191008
  9. PEMETREXED DISODIUM [Suspect]
     Active Substance: PEMETREXED DISODIUM
     Dosage: 350 MILLIGRAM, Q3W
     Route: 041
     Dates: start: 20191009
  10. RABEPRAZOLE SODIUM [Concomitant]
     Active Substance: RABEPRAZOLE SODIUM
     Indication: Prophylaxis against gastrointestinal ulcer
     Dosage: 10 MILLIGRAM, QD
     Route: 048
     Dates: end: 20210209
  11. RABEPRAZOLE SODIUM [Concomitant]
     Active Substance: RABEPRAZOLE SODIUM
     Indication: Gastrooesophageal reflux disease

REACTIONS (15)
  - Small intestinal perforation [Fatal]
  - Immune-mediated enterocolitis [Fatal]
  - Myelosuppression [Unknown]
  - Malignant neoplasm progression [Unknown]
  - Ascites [Unknown]
  - Gastrointestinal necrosis [Unknown]
  - Febrile neutropenia [Recovered/Resolved]
  - Neutrophil count decreased [Recovered/Resolved]
  - Blood alkaline phosphatase increased [Not Recovered/Not Resolved]
  - C-reactive protein increased [Unknown]
  - Biliary tract disorder [Unknown]
  - Rash [Unknown]
  - Hypoalbuminaemia [Unknown]
  - Pleural effusion [Unknown]
  - Hyperuricaemia [Unknown]

NARRATIVE: CASE EVENT DATE: 20190101
